FAERS Safety Report 6058246-5 (Version None)
Quarter: 2009Q1

REPORT INFORMATION
  Report Type: 
  Country: None (occurrence: None)
  Receive Date: 20090130
  Receipt Date: 20090119
  Transmission Date: 20090719
  Serious: Yes (Hospitalization)
  Sender: FDA-Public Use
  Company Number: FR-SOLVAY-00209000419

PATIENT
  Age: 20968 Day
  Sex: Male

DRUGS (3)
  1. COVERSYL NOS [Suspect]
     Indication: HYPERTENSION
     Dosage: DAILY DOSE:  UNKNOWN
     Route: 048
     Dates: start: 20081122, end: 20081205
  2. COVERSYL NOS [Suspect]
     Dosage: DAILY DOSE:  UNKNOWN
     Route: 048
  3. NOXAFIL [Suspect]
     Indication: ANTIFUNGAL PROPHYLAXIS
     Dosage: DAILY DOSE: 600 MILLIGRAM(S)
     Route: 048
     Dates: start: 20081118, end: 20081201

REACTIONS (1)
  - NEPHROTIC SYNDROME [None]
